FAERS Safety Report 4882226-6 (Version None)
Quarter: 2006Q1

REPORT INFORMATION
  Report Type: 
  Country: None (occurrence: None)
  Receive Date: 20060117
  Receipt Date: 20060103
  Transmission Date: 20060701
  Serious: Yes (Hospitalization, Disabling)
  Sender: FDA-Public Use
  Company Number: US-MERCK-0601USA00269

PATIENT
  Age: 49 Year
  Sex: Male
  Weight: 84 kg

DRUGS (9)
  1. VIOXX [Suspect]
     Indication: ARTHRITIS
     Route: 048
     Dates: start: 19990901, end: 20040901
  2. VIOXX [Suspect]
     Route: 048
     Dates: start: 19990901, end: 20040901
  3. METHOTREXATE [Concomitant]
     Indication: ARTHRITIS
     Route: 065
     Dates: start: 19990101
  4. PREDNISONE [Concomitant]
     Indication: ARTHRITIS
     Route: 065
  5. FOLIC ACID [Concomitant]
     Indication: ARTHRITIS
     Route: 065
  6. HYDROXYCHLOROQUINE SULFATE [Concomitant]
     Indication: ARTHRITIS
     Route: 065
  7. TYLENOL (CAPLET) [Concomitant]
     Indication: ARTHRITIS
     Route: 065
  8. TRICOR [Concomitant]
     Indication: BLOOD CHOLESTEROL INCREASED
     Route: 065
  9. ZOLOFT [Concomitant]
     Route: 065
     Dates: start: 19990101

REACTIONS (8)
  - ACUTE CORONARY SYNDROME [None]
  - ACUTE MYOCARDIAL INFARCTION [None]
  - BLOOD CHOLESTEROL INCREASED [None]
  - CORONARY ARTERY STENOSIS [None]
  - HAEMATOCRIT DECREASED [None]
  - HAEMOGLOBIN DECREASED [None]
  - PLEURAL EFFUSION [None]
  - UNEVALUABLE EVENT [None]
